FAERS Safety Report 16938486 (Version 2)
Quarter: 2019Q4

REPORT INFORMATION
  Report Type: Spontaneous
  Country: SG (occurrence: SG)
  Receive Date: 20191019
  Receipt Date: 20191206
  Transmission Date: 20200122
  Serious: Yes (Life-Threatening, Hospitalization, Other)
  Sender: FDA-Public Use
  Company Number: SG-MACLEODS PHARMACEUTICALS US LTD-MAC2019023364

PATIENT

DRUGS (2)
  1. AMLODIPINE BESYLATE. [Suspect]
     Active Substance: AMLODIPINE BESYLATE
     Indication: SUICIDE ATTEMPT
     Dosage: TOTAL 110 TABLETS,  550 MG
     Route: 048
  2. PARACETAMOL [Suspect]
     Active Substance: ACETAMINOPHEN
     Indication: SUICIDE ATTEMPT
     Dosage: TOTAL 26 TABLETS, 13 GM
     Route: 048

REACTIONS (14)
  - Hypotension [Recovering/Resolving]
  - Left ventricular dysfunction [Unknown]
  - Mental disorder [Unknown]
  - Right ventricular dysfunction [Unknown]
  - Drug level increased [Recovering/Resolving]
  - Shock [Recovering/Resolving]
  - Somnolence [Unknown]
  - Tachycardia [Recovering/Resolving]
  - Toxicity to various agents [Unknown]
  - Hypokalaemia [Unknown]
  - Intentional overdose [Unknown]
  - Lactic acidosis [Unknown]
  - Cardiotoxicity [Unknown]
  - White blood cell count increased [Unknown]
